FAERS Safety Report 21732396 (Version 3)
Quarter: 2023Q1

REPORT INFORMATION
  Report Type: Report from Study
  Country: US (occurrence: US)
  Receive Date: 20221215
  Receipt Date: 20230316
  Transmission Date: 20230417
  Serious: No
  Sender: FDA-Public Use
  Company Number: US-ABBVIE-4217184

PATIENT
  Age: 65 Year
  Sex: Female
  Weight: 55 kg

DRUGS (6)
  1. HUMIRA [Suspect]
     Active Substance: ADALIMUMAB
     Indication: Ankylosing spondylitis
     Dosage: FORM STRENGTH: 40 MG
     Route: 058
  2. HUMIRA [Suspect]
     Active Substance: ADALIMUMAB
     Route: 058
  3. HUMIRA [Suspect]
     Active Substance: ADALIMUMAB
     Route: 058
  4. HYDROCODONE [Concomitant]
     Active Substance: HYDROCODONE
     Indication: Product used for unknown indication
     Dosage: TIME INTERVAL: 0.33333333 DAYS: 10/325
     Route: 048
  5. MORPHINE SULFATE [Concomitant]
     Active Substance: MORPHINE SULFATE
     Indication: Product used for unknown indication
     Dosage: TIME INTERVAL: 0.33333333 DAYS
     Route: 048
  6. CLONAZEPAM [Concomitant]
     Active Substance: CLONAZEPAM
     Indication: Product used for unknown indication
     Dosage: 0.5
     Route: 048

REACTIONS (2)
  - Ear infection [Unknown]
  - Ear infection [Recovered/Resolved]

NARRATIVE: CASE EVENT DATE: 20221001
